FAERS Safety Report 11640508 (Version 1)
Quarter: 2015Q4

REPORT INFORMATION
  Report Type: Report from Study
  Country: US (occurrence: US)
  Receive Date: 20151019
  Receipt Date: 20151019
  Transmission Date: 20160304
  Serious: Yes (Hospitalization, Other)
  Sender: FDA-Public Use
  Company Number: US-BAXALTA-2014BAX025421

PATIENT
  Age: 27 Year
  Sex: Male
  Weight: 92 kg

DRUGS (18)
  1. PEGYLATED RECOMBINANT HUMAN FACTOR VIII [Suspect]
     Active Substance: RURIOCTOCOG ALFA PEGOL
     Dosage: ONCE
     Route: 042
     Dates: start: 20140513, end: 20140513
  2. PEGYLATED RECOMBINANT HUMAN FACTOR VIII [Suspect]
     Active Substance: RURIOCTOCOG ALFA PEGOL
     Indication: FACTOR VIII DEFICIENCY
     Dosage: ONCE
     Route: 042
     Dates: start: 20140513, end: 20140513
  3. PARACETAMOL [Concomitant]
     Active Substance: ACETAMINOPHEN
     Indication: PAIN
     Dosage: 1000 MG, AS NEEDED Q4-6 HRS
     Route: 048
     Dates: start: 20121029
  4. OXYCODONE [Concomitant]
     Active Substance: OXYCODONE
     Indication: PANCREATITIS
  5. CIPROFLOXACIN. [Concomitant]
     Active Substance: CIPROFLOXACIN
     Indication: PANCREATITIS
     Dosage: 500 MG, 2X A DAY
     Route: 048
     Dates: start: 20140510, end: 20140516
  6. PEGYLATED RECOMBINANT HUMAN FACTOR VIII [Suspect]
     Active Substance: RURIOCTOCOG ALFA PEGOL
     Dosage: 60 IU/KG, ONCE
     Route: 042
     Dates: start: 20140515, end: 20140515
  7. METOPROLOL TARTRATE. [Concomitant]
     Active Substance: METOPROLOL TARTRATE
     Indication: HYPERTENSION
     Dosage: 50 MG, 1X A DAY
     Route: 048
     Dates: start: 20100913
  8. PEGYLATED RECOMBINANT HUMAN FACTOR VIII [Suspect]
     Active Substance: RURIOCTOCOG ALFA PEGOL
     Dosage: 60 IU/KG, ONCE
     Route: 042
     Dates: start: 20140514, end: 20140514
  9. PEGYLATED RECOMBINANT HUMAN FACTOR VIII [Suspect]
     Active Substance: RURIOCTOCOG ALFA PEGOL
     Dosage: 60 IU/KG, ONCE
     Route: 042
     Dates: start: 20140516, end: 20140516
  10. ONDANSETRON [Concomitant]
     Active Substance: ONDANSETRON
     Indication: PROPHYLAXIS OF NAUSEA AND VOMITING
     Dosage: 4 MG, UNK
     Route: 048
     Dates: start: 20140514
  11. METOPROLOL TARTRATE. [Concomitant]
     Active Substance: METOPROLOL TARTRATE
     Dosage: 25 MG, 1X A DAY
     Route: 048
     Dates: start: 20130906
  12. ZIPRASIDONE. [Concomitant]
     Active Substance: ZIPRASIDONE
     Indication: BIPOLAR DISORDER
     Dosage: 20 MG, 1X A DAY
     Route: 048
     Dates: start: 20140514, end: 20140516
  13. PANTOPRAZOLE [Concomitant]
     Active Substance: PANTOPRAZOLE SODIUM
     Indication: GASTROOESOPHAGEAL REFLUX PROPHYLAXIS
     Dosage: 20 MG, 2X A DAY
     Route: 042
     Dates: start: 20140514, end: 20140516
  14. OXYCODONE [Concomitant]
     Active Substance: OXYCODONE
     Indication: PAIN
     Dosage: 10 MG, AS NEEDED
     Route: 048
     Dates: start: 20140515, end: 20140516
  15. RIZATRIPTAN BENZOATE. [Concomitant]
     Active Substance: RIZATRIPTAN BENZOATE
     Indication: MIGRAINE
     Dosage: 10 MG, AS NEEDED
     Route: 048
     Dates: start: 20100913
  16. HYDROMORPHONE [Concomitant]
     Active Substance: HYDROMORPHONE
     Indication: PAIN
     Dosage: 1 MG, ONCE
     Route: 042
     Dates: start: 20140513, end: 20140513
  17. PEGYLATED RECOMBINANT HUMAN FACTOR VIII [Suspect]
     Active Substance: RURIOCTOCOG ALFA PEGOL
     Indication: FACTOR VIII DEFICIENCY
     Dosage: 3897 IU, ONCE
     Route: 042
     Dates: start: 20130819
  18. METOPROLOL [Concomitant]
     Active Substance: METOPROLOL
     Indication: HYPERTENSION
     Dosage: 25 MG, 1X A DAY
     Route: 048
     Dates: start: 20130906

REACTIONS (1)
  - Pancreatitis [Recovered/Resolved]

NARRATIVE: CASE EVENT DATE: 20140510
